FAERS Safety Report 9463949 (Version 2)
Quarter: 2013Q3

REPORT INFORMATION
  Report Type: Spontaneous
  Country: US (occurrence: US)
  Receive Date: 20130819
  Receipt Date: 20130819
  Transmission Date: 20140515
  Serious: Yes (Hospitalization, Disabling, Other)
  Sender: FDA-Public Use
  Company Number: US-009507513-1203USA03314

PATIENT
  Sex: Female

DRUGS (7)
  1. FOSAMAX [Suspect]
     Indication: OSTEOPOROSIS
     Dosage: 35 MG, UNK
     Route: 048
     Dates: start: 200310, end: 200602
  2. FOSAMAX [Suspect]
     Indication: OSTEOPENIA
  3. FOSAMAX [Suspect]
     Indication: OSTEOPOROSIS
     Route: 048
     Dates: end: 2009
  4. FOSAMAX [Suspect]
     Indication: OSTEOPENIA
  5. BONIVA [Suspect]
     Indication: OSTEOPOROSIS
     Dosage: 150 MG, QM
     Route: 048
     Dates: start: 200602, end: 200809
  6. BONIVA [Suspect]
     Indication: OSTEOPENIA
  7. ACTONEL [Suspect]
     Indication: OSTEOPOROSIS
     Dosage: 150 MG, UNK
     Route: 048
     Dates: start: 200809, end: 2009

REACTIONS (24)
  - Femur fracture [Not Recovered/Not Resolved]
  - Osteoporosis [Not Recovered/Not Resolved]
  - Multiple fractures [Not Recovered/Not Resolved]
  - Osteonecrosis [Unknown]
  - Femur fracture [Not Recovered/Not Resolved]
  - Squamous cell carcinoma of skin [Unknown]
  - Wound drainage [Recovering/Resolving]
  - Arthritis bacterial [Unknown]
  - Low turnover osteopathy [Not Recovered/Not Resolved]
  - Oedema [Unknown]
  - Fall [Unknown]
  - Chondrocalcinosis pyrophosphate [Unknown]
  - Nodal osteoarthritis [Unknown]
  - Ureteric stenosis [Unknown]
  - Peptic ulcer [Unknown]
  - Urinary tract infection [Not Recovered/Not Resolved]
  - Pyelonephritis [Unknown]
  - Pubis fracture [Unknown]
  - Rotator cuff syndrome [Unknown]
  - Hyponatraemia [Unknown]
  - Cancer surgery [Unknown]
  - Actinic keratosis [Unknown]
  - Hyperkeratosis [Unknown]
  - Gastrooesophageal reflux disease [Unknown]
